FAERS Safety Report 4475687-8 (Version None)
Quarter: 2004Q3

REPORT INFORMATION
  Report Type: 
  Country: None (occurrence: None)
  Receive Date: 20040923
  Receipt Date: 20040716
  Transmission Date: 20050211
  Serious: No
  Sender: FDA-Public Use
  Company Number: USA040772838

PATIENT
  Age: 54 Year
  Sex: Female

DRUGS (2)
  1. FORTEO [Suspect]
     Indication: BONE DENSITY DECREASED
     Dates: start: 20040301
  2. ZYRTEC [Concomitant]

REACTIONS (8)
  - COUGH [None]
  - DYSPHAGIA [None]
  - EYE IRRITATION [None]
  - NASAL CONGESTION [None]
  - NAUSEA [None]
  - PHARYNGOLARYNGEAL PAIN [None]
  - RASH [None]
  - RHINORRHOEA [None]
